FAERS Safety Report 5355513-5 (Version None)
Quarter: 2007Q2

REPORT INFORMATION
  Report Type: 
  Country: None (occurrence: None)
  Receive Date: 20070613
  Receipt Date: 20070605
  Transmission Date: 20071010
  Serious: Yes (Hospitalization)
  Sender: FDA-Public Use
  Company Number: CA-AVENTIS-200715047GDDC

PATIENT
  Age: 65 Year
  Sex: Male

DRUGS (8)
  1. TAXOTERE [Suspect]
     Indication: GASTRIC CANCER
     Route: 042
     Dates: start: 20070530, end: 20070530
  2. METFORMIN HCL [Suspect]
     Route: 048
  3. NEXIUM [Concomitant]
     Route: 048
  4. XANAX [Concomitant]
     Route: 048
  5. STEMETIL                           /00013301/ [Concomitant]
     Indication: NAUSEA
  6. IRON NOS [Concomitant]
     Route: 048
  7. SERAX                              /00040901/ [Concomitant]
     Route: 048
  8. CODEINE SUL TAB [Concomitant]

REACTIONS (1)
  - LACTIC ACIDOSIS [None]
